FAERS Safety Report 7028770-7 (Version None)
Quarter: 2010Q4

REPORT INFORMATION
  Report Type: 
  Country: None (occurrence: None)
  Receive Date: 20101004
  Receipt Date: 20101004
  Transmission Date: 20110411
  Serious: No
  Sender: FDA-Public Use
  Company Number: None

PATIENT
  Sex: Male
  Weight: 68.0396 kg

DRUGS (2)
  1. EXJADE [Suspect]
     Indication: IRON OVERLOAD
     Dosage: 1250 MGS QD PO
     Route: 048
     Dates: start: 20100810, end: 20100916
  2. EXJADE [Suspect]

REACTIONS (3)
  - HYPOACUSIS [None]
  - RASH [None]
  - VISION BLURRED [None]
